FAERS Safety Report 9096433 (Version 1)
Quarter: 2013Q1

REPORT INFORMATION
  Report Type: Spontaneous
  Country: FR (occurrence: None)
  Receive Date: 20130124
  Receipt Date: 20130124
  Transmission Date: 20140127
  Serious: Yes (Hospitalization)
  Sender: FDA-Public Use
  Company Number: 2013000002

PATIENT
  Age: 78 Year
  Sex: Female

DRUGS (8)
  1. ACEON (PERINDOPRIL ERBUMINE) TABLET [Suspect]
     Indication: HYPERTENSION
     Route: 048
  2. STILNOX [Suspect]
     Indication: INSOMNIA
     Route: 048
     Dates: end: 20121123
  3. ISOPTINE [Suspect]
     Indication: HYPERTENSION
     Route: 048
  4. GLYCERYL TRINITRATE [Suspect]
     Indication: ANGINA PECTORIS
     Route: 062
  5. TANAKAN (GINKGO BILOBA EXTRACT) [Concomitant]
  6. TAHOR (ATORVASTATIN CALCIUM) [Concomitant]
  7. PLAVIX (CLOPIDOGREL SULFATE) [Concomitant]
  8. KARDEGIC (ACETYLSALICYLATE LYSINE) [Concomitant]

REACTIONS (4)
  - Somnolence [None]
  - Gait disturbance [None]
  - Decreased appetite [None]
  - Fall [None]
